FAERS Safety Report 7814551-0 (Version None)
Quarter: 2011Q4

REPORT INFORMATION
  Report Type: 
  Country: None (occurrence: None)
  Receive Date: 20111014
  Receipt Date: 20111011
  Transmission Date: 20120403
  Serious: Yes (Other)
  Sender: FDA-Public Use
  Company Number: US-PFIZER INC-2011242950

PATIENT
  Sex: Male
  Weight: 89.796 kg

DRUGS (1)
  1. XALATAN [Suspect]
     Indication: DIABETIC GLAUCOMA
     Dosage: UNK

REACTIONS (1)
  - VASCULAR GRAFT [None]
